FAERS Safety Report 19855105 (Version 2)
Quarter: 2024Q2

REPORT INFORMATION
  Report Type: Report from Study
  Country: CA (occurrence: None)
  Receive Date: 20210920
  Receipt Date: 20240619
  Transmission Date: 20240716
  Serious: Yes (Hospitalization, Other)
  Sender: FDA-Public Use
  Company Number: CA-PFIZER INC-2019394794

PATIENT
  Age: 57 Year
  Sex: Female
  Weight: 88 kg

DRUGS (24)
  1. METHOTREXATE [Suspect]
     Active Substance: METHOTREXATE
     Indication: Product used for unknown indication
     Dosage: 17.5 (UNITS UNSPECIFIED)
     Dates: end: 201501
  2. METHOTREXATE [Suspect]
     Active Substance: METHOTREXATE
     Dates: end: 201501
  3. ACTEMRA [Suspect]
     Active Substance: TOCILIZUMAB
     Indication: Rheumatoid arthritis
     Dates: start: 20160308
  4. ACTEMRA [Suspect]
     Active Substance: TOCILIZUMAB
  5. ACTEMRA [Suspect]
     Active Substance: TOCILIZUMAB
  6. ACTEMRA [Suspect]
     Active Substance: TOCILIZUMAB
  7. ACTEMRA [Suspect]
     Active Substance: TOCILIZUMAB
     Dates: start: 20141125
  8. ACTEMRA [Suspect]
     Active Substance: TOCILIZUMAB
     Dates: start: 20150217
  9. ACTEMRA [Suspect]
     Active Substance: TOCILIZUMAB
     Dates: start: 20150317
  10. ACTEMRA [Suspect]
     Active Substance: TOCILIZUMAB
     Dates: start: 20150512
  11. ACTEMRA [Suspect]
     Active Substance: TOCILIZUMAB
     Dates: start: 20151110
  12. ACTEMRA [Suspect]
     Active Substance: TOCILIZUMAB
     Dosage: CYCLICAL
  13. ACTEMRA [Suspect]
     Active Substance: TOCILIZUMAB
  14. ACTEMRA [Suspect]
     Active Substance: TOCILIZUMAB
  15. ACTEMRA [Suspect]
     Active Substance: TOCILIZUMAB
     Dates: start: 20141125
  16. ACTEMRA [Suspect]
     Active Substance: TOCILIZUMAB
  17. ACTEMRA [Suspect]
     Active Substance: TOCILIZUMAB
  18. ATIVAN [Concomitant]
     Active Substance: LORAZEPAM
  19. CELEBREX [Concomitant]
     Active Substance: CELECOXIB
  20. INDAPAMIDE [Concomitant]
     Active Substance: INDAPAMIDE
  21. PROLIA [Concomitant]
     Active Substance: DENOSUMAB
  22. RAMIPRIL [Concomitant]
     Active Substance: RAMIPRIL
  23. ROSUVASTATIN CALCIUM [Concomitant]
     Active Substance: ROSUVASTATIN CALCIUM
     Dosage: 5 MG, 1 EVERY 2 DAYS
  24. SYNTHROID [Concomitant]
     Active Substance: LEVOTHYROXINE SODIUM

REACTIONS (12)
  - Blood test abnormal [Unknown]
  - Weight decreased [Unknown]
  - Weight increased [Unknown]
  - Osteoporosis [Unknown]
  - Rib fracture [Unknown]
  - Anxiety [Recovered/Resolved]
  - Arthralgia [Recovered/Resolved]
  - Dyslipidaemia [Recovered/Resolved]
  - Hypertension [Recovered/Resolved]
  - Papillary thyroid cancer [Recovered/Resolved]
  - Wrist fracture [Recovered/Resolved]
  - Hepatic steatosis [Recovered/Resolved]

NARRATIVE: CASE EVENT DATE: 20150509
